FAERS Safety Report 25256123 (Version 2)
Quarter: 2025Q2

REPORT INFORMATION
  Report Type: Spontaneous
  Country: US (occurrence: US)
  Receive Date: 20250430
  Receipt Date: 20250529
  Transmission Date: 20250717
  Serious: No
  Sender: BLUEPRINT MEDICINES
  Company Number: US-Blueprint Medicines Corporation-2025-AER-00865

PATIENT
  Age: 28 Year
  Sex: Female

DRUGS (1)
  1. AYVAKIT [Suspect]
     Active Substance: AVAPRITINIB
     Indication: Systemic mastocytosis
     Route: 065
     Dates: start: 20250314

REACTIONS (13)
  - Product dose omission issue [Unknown]
  - Drug ineffective [Unknown]
  - Red blood cell count increased [Unknown]
  - Nausea [Unknown]
  - Headache [Unknown]
  - Brain fog [Unknown]
  - Pain [Unknown]
  - Flank pain [Unknown]
  - Back pain [Unknown]
  - Fatigue [Unknown]
  - Increased appetite [Unknown]
  - Mood altered [Unknown]
  - Abdominal pain upper [Unknown]

NARRATIVE: CASE EVENT DATE: 20250401
